FAERS Safety Report 9106346 (Version 3)
Quarter: 2013Q2

REPORT INFORMATION
  Report Type: Spontaneous
  Country: JP (occurrence: JP)
  Receive Date: 20130221
  Receipt Date: 20130416
  Transmission Date: 20140414
  Serious: Yes (Death)
  Sender: FDA-Public Use
  Company Number: JP-ABBOTT-13P-087-1047324-00

PATIENT
  Age: 54 Year
  Sex: Male
  Weight: 91.6 kg

DRUGS (29)
  1. KLARICID [Suspect]
     Indication: ATYPICAL MYCOBACTERIAL INFECTION
     Route: 048
     Dates: start: 20111122, end: 20111124
  2. KLARICID [Suspect]
     Dates: start: 20111205, end: 20111210
  3. ZOPICLONE [Concomitant]
     Indication: INSOMNIA
     Route: 048
     Dates: start: 20111117
  4. DIGESTIVE ENZYME [Concomitant]
     Indication: DYSPEPSIA
     Dates: start: 20111108
  5. RIFAMPIN [Concomitant]
     Indication: PRODUCT USED FOR UNKNOWN INDICATION
  6. RIFAMPIN [Concomitant]
     Indication: PRODUCT USED FOR UNKNOWN INDICATION
  7. ETHAMBUTOL [Concomitant]
     Indication: PRODUCT USED FOR UNKNOWN INDICATION
  8. ETHAMBUTOL [Concomitant]
     Indication: PRODUCT USED FOR UNKNOWN INDICATION
  9. KANAMYCIN [Concomitant]
     Indication: PRODUCT USED FOR UNKNOWN INDICATION
  10. KANAMYCIN [Concomitant]
     Indication: PRODUCT USED FOR UNKNOWN INDICATION
  11. FERROUS SODIUM CITRATE [Concomitant]
     Indication: ANAEMIA
     Route: 048
     Dates: start: 20111108
  12. LACTOMIN [Concomitant]
     Indication: GASTROINTESTINAL DISORDER
     Dates: start: 20111108
  13. VITAMIN B COMPLEX [Concomitant]
     Indication: HYPOVITAMINOSIS
     Route: 048
     Dates: start: 20111108
  14. ASCORBIC ACID W/CALCIUM PANTOTHENAT [Concomitant]
     Indication: HYPOVITAMINOSIS
     Route: 048
     Dates: start: 20111108
  15. LANSOPRAZOLE [Concomitant]
     Indication: PROPHYLAXIS AGAINST GASTROINTESTINAL ULCER
     Route: 048
     Dates: start: 20111108, end: 20111204
  16. AMPICILLIN SODIUM W/SULBACTAM SODIUM [Concomitant]
     Indication: ANTIBIOTIC PROPHYLAXIS
     Route: 041
     Dates: start: 20111108, end: 20111122
  17. PAZUFLOXACIN MESILATE [Concomitant]
     Indication: ANTIBIOTIC PROPHYLAXIS
     Route: 041
     Dates: start: 20111114, end: 20111123
  18. LOXOPROFEN SODIUM [Concomitant]
     Indication: ANTIINFLAMMATORY THERAPY
     Route: 048
     Dates: start: 20111117
  19. RIFAMPICIN [Concomitant]
     Indication: ANTIBIOTIC PROPHYLAXIS
     Route: 048
     Dates: start: 20111206, end: 20111210
  20. RIFAMPICIN [Concomitant]
     Dates: start: 20111230
  21. FAMOTIDINE [Concomitant]
     Indication: GASTRIC DISORDER
     Route: 048
     Dates: start: 20111205, end: 20111210
  22. MEROPENEM TRIHYDRATE [Concomitant]
     Indication: ANTIBIOTIC PROPHYLAXIS
     Route: 041
     Dates: start: 20111221, end: 20120104
  23. ETHAMBUTOL HYDROCHLORIDE [Concomitant]
     Indication: ANTIBIOTIC PROPHYLAXIS
     Route: 048
     Dates: start: 20120103
  24. KANAMYCIN SULFATE [Concomitant]
     Indication: ANTIBIOTIC PROPHYLAXIS
     Route: 058
     Dates: start: 20120106
  25. PREDNISOLONE [Concomitant]
     Indication: INFLAMMATION
     Route: 048
     Dates: start: 20120109
  26. MORPHINE HYDROCHLORIDE TRIHYDRATE [Concomitant]
     Indication: ANALGESIC THERAPY
     Route: 048
     Dates: start: 20120105
  27. AZITHROMYCIN DIHYDRATE [Concomitant]
     Indication: PRODUCT USED FOR UNKNOWN INDICATION
     Route: 048
     Dates: start: 20120107, end: 20120109
  28. AZITHROMYCIN DIHYDRATE [Concomitant]
     Route: 041
     Dates: start: 20120110
  29. OMEPRAZOLE [Concomitant]
     Route: 048
     Dates: start: 20111222

REACTIONS (3)
  - Atypical mycobacterial infection [Fatal]
  - Rash [Not Recovered/Not Resolved]
  - Rash [Recovered/Resolved]
